FAERS Safety Report 6233860-2 (Version None)
Quarter: 2009Q2

REPORT INFORMATION
  Report Type: 
  Country: None (occurrence: None)
  Receive Date: 20090616
  Receipt Date: 20090616
  Transmission Date: 20091009
  Serious: Yes (Hospitalization, Other)
  Sender: FDA-Public Use
  Company Number: None

PATIENT
  Age: 29 Year
  Sex: Female
  Weight: 79.3795 kg

DRUGS (2)
  1. SINGULAIR [Suspect]
     Indication: ASTHMA EXERCISE INDUCED
     Dosage: ONE TAB BEDTIME PO
     Route: 048
     Dates: start: 20090512, end: 20090613
  2. SINGULAIR [Suspect]
     Indication: HYPERSENSITIVITY
     Dosage: ONE TAB BEDTIME PO
     Route: 048
     Dates: start: 20090512, end: 20090613

REACTIONS (6)
  - ANXIETY [None]
  - CONDITION AGGRAVATED [None]
  - DEPRESSIVE SYMPTOM [None]
  - INITIAL INSOMNIA [None]
  - INTENTIONAL OVERDOSE [None]
  - SUICIDE ATTEMPT [None]
